FAERS Safety Report 5468893-7 (Version None)
Quarter: 2007Q3

REPORT INFORMATION
  Report Type: 
  Country: None (occurrence: None)
  Receive Date: 20070926
  Receipt Date: 20070911
  Transmission Date: 20080115
  Serious: Yes (Hospitalization)
  Sender: FDA-Public Use
  Company Number: US-GENENTECH-246716

PATIENT
  Sex: Male
  Weight: 74.1 kg

DRUGS (14)
  1. BEVACIZUMAB [Suspect]
     Indication: NON-SMALL CELL LUNG CANCER
     Dosage: 1110 MG, Q3W
     Route: 042
     Dates: start: 20070821
  2. CARBOPLATIN [Suspect]
     Indication: NON-SMALL CELL LUNG CANCER
     Dosage: 1040 MG, UNK
     Dates: start: 20070821
  3. PACLITAXEL [Suspect]
     Indication: NON-SMALL CELL LUNG CANCER
     Dosage: 374 UNK, UNK
     Dates: start: 20070821
  4. LOTENSIN [Concomitant]
     Indication: HYPERTENSION
  5. ADVAIR DISKUS 100/50 [Concomitant]
     Indication: CHRONIC OBSTRUCTIVE PULMONARY DISEASE
  6. ALBUTEROL [Concomitant]
     Indication: CHRONIC OBSTRUCTIVE PULMONARY DISEASE
  7. NORVASC [Concomitant]
     Indication: HYPERTENSION
  8. FEOSOL [Concomitant]
     Indication: IRON DEFICIENCY
     Dates: start: 20070403
  9. VICODIN [Concomitant]
     Indication: MUSCULOSKELETAL CHEST PAIN
     Dosage: UNK, PRN
     Dates: start: 20070816
  10. ALOXI [Concomitant]
     Indication: NAUSEA
     Dates: start: 20070821
  11. DECADRON [Concomitant]
     Indication: HYPERSENSITIVITY
     Dates: start: 20070821
  12. BENADRYL [Concomitant]
     Indication: HYPERSENSITIVITY
     Dates: start: 20070821
  13. TAGAMET [Concomitant]
     Indication: HYPERSENSITIVITY
  14. SPIRIVA [Concomitant]
     Indication: DRUG USE FOR UNKNOWN INDICATION

REACTIONS (6)
  - ASTHENIA [None]
  - BACTERIAL SEPSIS [None]
  - BLOOD CREATININE DECREASED [None]
  - CHEST DISCOMFORT [None]
  - HAEMOGLOBIN DECREASED [None]
  - HEPATIC CIRRHOSIS [None]
